FAERS Safety Report 23586057 (Version 1)
Quarter: 2024Q1

REPORT INFORMATION
  Report Type: Spontaneous
  Country: SE (occurrence: SE)
  Receive Date: 20240301
  Receipt Date: 20240301
  Transmission Date: 20240410
  Serious: Yes (Hospitalization)
  Sender: FDA-Public Use
  Company Number: None

PATIENT
  Age: 28 Year
  Sex: Female

DRUGS (5)
  1. OXAZEPAM [Suspect]
     Active Substance: OXAZEPAM
     Indication: Product used for unknown indication
     Route: 065
     Dates: start: 20231124
  2. METHADONE HYDROCHLORIDE [Suspect]
     Active Substance: METHADONE HYDROCHLORIDE
     Indication: Product used for unknown indication
     Route: 065
     Dates: start: 20231124
  3. FENTANYL [Suspect]
     Active Substance: FENTANYL\FENTANYL CITRATE
     Indication: Product used for unknown indication
     Route: 065
     Dates: start: 20231124
  4. CLONAZEPAM [Suspect]
     Active Substance: CLONAZEPAM
     Indication: Product used for unknown indication
     Route: 065
     Dates: start: 20231124
  5. ZOPICLONE [Suspect]
     Active Substance: ZOPICLONE
     Indication: Product used for unknown indication
     Dosage: ZOPIKLON
     Route: 065
     Dates: start: 20231124

REACTIONS (5)
  - Intentional self-injury [Recovering/Resolving]
  - Pneumonia [Recovering/Resolving]
  - Depressed level of consciousness [Recovering/Resolving]
  - Tachycardia [Recovering/Resolving]
  - Toxicity to various agents [Recovering/Resolving]

NARRATIVE: CASE EVENT DATE: 20231124
